FAERS Safety Report 18247738 (Version 1)
Quarter: 2020Q3

REPORT INFORMATION
  Report Type: Spontaneous
  Country: US (occurrence: US)
  Receive Date: 20200909
  Receipt Date: 20200909
  Transmission Date: 20201103
  Serious: Yes (Congenital Anomaly)
  Sender: FDA-Public Use
  Company Number: US-GLAXOSMITHKLINE-US2020177305

PATIENT
  Age: 41 Year

DRUGS (2)
  1. ZANTAC [Suspect]
     Active Substance: RANITIDINE HYDROCHLORIDE
     Dosage: UNK
  2. RANITIDINE. [Suspect]
     Active Substance: RANITIDINE
     Dosage: UNK

REACTIONS (1)
  - Congenital anomaly [Unknown]
